FAERS Safety Report 8879413 (Version 2)
Quarter: 2012Q4

REPORT INFORMATION
  Report Type: 
  Country: US (occurrence: US)
  Receive Date: 20121101
  Receipt Date: 20121214
  Transmission Date: 20130627
  Serious: No
  Sender: FDA-Public Use
  Company Number: US-BIOGENIDEC-2012BI047670

PATIENT
  Age: 52 Year
  Sex: Female

DRUGS (1)
  1. AVONEX [Suspect]
     Indication: MULTIPLE SCLEROSIS
     Route: 030
     Dates: start: 20040201

REACTIONS (6)
  - Rectocele [Not Recovered/Not Resolved]
  - Bladder neck suspension [Recovered/Resolved]
  - Blood thyroid stimulating hormone increased [Not Recovered/Not Resolved]
  - Temperature intolerance [Not Recovered/Not Resolved]
  - Multiple sclerosis relapse [Not Recovered/Not Resolved]
  - Pain in extremity [Not Recovered/Not Resolved]
